FAERS Safety Report 8388533-7 (Version None)
Quarter: 2012Q2

REPORT INFORMATION
  Report Type: 
  Country: None (occurrence: None)
  Receive Date: 20120525
  Receipt Date: 20120511
  Transmission Date: 20120825
  Serious: Yes (Other)
  Sender: FDA-Public Use
  Company Number: CHPA2012US010951

PATIENT
  Age: 61 Year
  Sex: Male

DRUGS (1)
  1. MYOFLEX ANALGESIC CREME [Suspect]
     Indication: PAIN IN EXTREMITY
     Dosage: AMOUNT TO COAT AREA, UNK
     Route: 061
     Dates: start: 19860101

REACTIONS (5)
  - THERAPEUTIC RESPONSE DECREASED [None]
  - THERAPEUTIC RESPONSE UNEXPECTED [None]
  - ARTHRALGIA [None]
  - LIMB INJURY [None]
  - ARTHRITIS [None]
